FAERS Safety Report 8377617-5 (Version None)
Quarter: 2012Q2

REPORT INFORMATION
  Report Type: 
  Country: None (occurrence: None)
  Receive Date: 20120522
  Receipt Date: 20120512
  Transmission Date: 20120825
  Serious: Yes (Hospitalization)
  Sender: FDA-Public Use
  Company Number: US-PFIZER INC-2012108314

PATIENT
  Sex: Male
  Weight: 73.02 kg

DRUGS (14)
  1. ATENOLOL [Concomitant]
     Dosage: UNK
     Dates: start: 20120313
  2. CARBOPLATIN [Suspect]
     Indication: METASTATIC MALIGNANT MELANOMA
     Dosage: 430 MG, AUC4
     Route: 042
     Dates: start: 20120131
  3. LISINOPRIL [Concomitant]
     Dosage: UNK
     Dates: start: 20120313
  4. PACLITAXEL [Suspect]
     Indication: METASTATIC MALIGNANT MELANOMA
     Dosage: 125 MG/M2, CYCLIC, EVERY 3 WEEKS
     Route: 042
     Dates: start: 20120131
  5. MAXIDEX [Concomitant]
     Dosage: UNK
     Dates: start: 20120313
  6. ATIVAN [Concomitant]
     Dosage: UNK
     Dates: start: 20120117
  7. AXITINIB [Suspect]
     Indication: METASTATIC MALIGNANT MELANOMA
     Dosage: 3 MG, 2X/DAY
     Route: 048
     Dates: start: 20120131
  8. TYLENOL [Concomitant]
     Dosage: UNK
     Dates: start: 20120207
  9. ZETAR [Concomitant]
     Dosage: UNK
     Dates: start: 20090201
  10. ACIDOPHILUS [Concomitant]
     Dosage: UNK
     Dates: start: 20090301
  11. NYSTATIN [Concomitant]
     Dosage: UNK
     Dates: start: 20120209
  12. TRICOR [Concomitant]
     Dosage: UNK
     Dates: start: 20090201
  13. PRADAXA [Concomitant]
     Dosage: UNK
     Dates: start: 20111210
  14. VITAMIN D [Concomitant]
     Dosage: UNK
     Dates: start: 20110401

REACTIONS (1)
  - DEHYDRATION [None]
